FAERS Safety Report 8658244 (Version 4)
Quarter: 2012Q4

REPORT INFORMATION
  Report Type: Report from Study
  Country: US (occurrence: US)
  Receive Date: 20120710
  Receipt Date: 20120828
  Transmission Date: 20130627
  Serious: Yes (Hospitalization)
  Sender: FDA-Public Use
  Company Number: US-B.I. PHARMACEUTICALS,INC./RIDGEFIELD-2012-BP-14908BP

PATIENT
  Age: 59 Year
  Sex: Female
  Weight: 108.2 kg

DRUGS (17)
  1. TIOTROPIUM BROMIDE [Suspect]
     Indication: ASTHMA
     Dosage: 5 mcg
     Route: 055
     Dates: start: 20120410, end: 20120630
  2. IBUPROFEN [Concomitant]
     Indication: MUSCULOSKELETAL PAIN
     Route: 048
     Dates: start: 20120523
  3. IBUPROFEN [Concomitant]
     Indication: PAIN IN EXTREMITY
  4. MULTIVITAMIN [Concomitant]
     Indication: ROUTINE HEALTH MAINTENANCE
     Route: 048
     Dates: start: 20120515
  5. TOPAMAX [Concomitant]
     Indication: MIGRAINE
     Dosage: 25 mg
     Route: 048
     Dates: start: 20120316
  6. VYTORIN [Concomitant]
     Indication: HYPERCHOLESTEROLAEMIA
     Route: 048
     Dates: start: 2009
  7. VITAMIN D [Concomitant]
     Indication: VITAMIN D DEFICIENCY
     Dosage: 5000 U
     Route: 048
     Dates: start: 200808
  8. TRAZADONE [Concomitant]
     Indication: BIPOLAR DISORDER
     Dosage: 100 mg
     Route: 048
     Dates: start: 2009
  9. LAMICTAL [Concomitant]
     Indication: BIPOLAR DISORDER
     Dosage: 300 mg
     Route: 048
     Dates: start: 2005
  10. GAVISCON [Concomitant]
     Indication: GASTROOESOPHAGEAL REFLUX DISEASE
     Route: 048
     Dates: start: 1990
  11. EXCEDRIN MIGRAINE [Concomitant]
     Indication: MIGRAINE
     Route: 048
     Dates: start: 200507
  12. CYMBALTA [Concomitant]
     Indication: BIPOLAR DISORDER
     Dosage: 120 mg
     Route: 048
     Dates: start: 199303
  13. CLONAZEPAM [Concomitant]
     Indication: ANXIETY
     Dosage: 10 mg
     Route: 048
     Dates: start: 200506
  14. ASPIRIN [Concomitant]
     Indication: PROPHYLAXIS
     Dosage: 81 mg
     Route: 048
     Dates: start: 200507
  15. SINGULAIR [Concomitant]
     Indication: ASTHMA
     Dosage: 10 mg
     Route: 048
     Dates: start: 2009
  16. PROAIR [Concomitant]
     Indication: ASTHMA
     Route: 055
     Dates: start: 20111219
  17. PULMICORT [Concomitant]
     Indication: ASTHMA
     Dosage: 720 mcg
     Route: 055
     Dates: start: 20111121

REACTIONS (1)
  - Colitis [Recovered/Resolved]
